FAERS Safety Report 4549714-3 (Version None)
Quarter: 2005Q1

REPORT INFORMATION
  Report Type: 
  Country: None (occurrence: None)
  Receive Date: 20050110
  Receipt Date: 20041227
  Transmission Date: 20050727
  Serious: Yes (Hospitalization)
  Sender: FDA-Public Use
  Company Number: 2004BI000119

PATIENT
  Age: 43 Year
  Sex: Female

DRUGS (3)
  1. AVONEX [Suspect]
     Indication: MULTIPLE SCLEROSIS
     Dosage: 30 UG; QW; IM
     Route: 030
     Dates: start: 19991001
  2. FIORICET [Concomitant]
  3. LIORESAL [Concomitant]

REACTIONS (4)
  - FURUNCLE [None]
  - IMMUNE SYSTEM DISORDER [None]
  - IMMUNOSUPPRESSION [None]
  - INFECTED CYST [None]
